FAERS Safety Report 9231897 (Version 1)
Quarter: 2013Q2

REPORT INFORMATION
  Report Type: Spontaneous
  Country: US (occurrence: US)
  Receive Date: 20130415
  Receipt Date: 20130415
  Transmission Date: 20140414
  Serious: Yes (Other)
  Sender: FDA-Public Use
  Company Number: US-COVIDIEN/TYCO HEALTHCARE/MALLINCKRODT-T201204622

PATIENT
  Age: 21 Year
  Sex: Female

DRUGS (4)
  1. HYDROMORPHONE [Suspect]
     Dosage: UNK
  2. FENTANYL [Suspect]
  3. OTHER SEDATIVE/HYPNOTIC/ANTI-ANXIETY OR ANTI-PSYCHOTIC DRUG [Suspect]
     Dosage: UNK
  4. BENZODIAZEPINE DERIVATIVES [Suspect]
     Dosage: UNK

REACTIONS (1)
  - Suicide attempt [Unknown]
